FAERS Safety Report 14354272 (Version 1)
Quarter: 2018Q1

REPORT INFORMATION
  Report Type: Spontaneous
  Country: GB (occurrence: GB)
  Receive Date: 20180105
  Receipt Date: 20180105
  Transmission Date: 20180509
  Serious: Yes (Death, Other)
  Sender: FDA-Public Use
  Company Number: GB-CIPLA LTD.-2017GB30186

PATIENT

DRUGS (6)
  1. ZOPICLONE [Concomitant]
     Active Substance: ZOPICLONE
     Indication: SLEEP DISORDER
     Dosage: UNK
     Route: 065
  2. RISPERIDONE. [Suspect]
     Active Substance: RISPERIDONE
     Dosage: 1 DF, IN TOTAL
     Route: 065
     Dates: start: 20161020
  3. RISPERIDONE. [Suspect]
     Active Substance: RISPERIDONE
     Indication: AGGRESSION
     Dosage: UNK
     Route: 065
     Dates: start: 20160928, end: 20161005
  4. LORAZEPAM. [Suspect]
     Active Substance: LORAZEPAM
     Dosage: UNK
     Route: 065
     Dates: start: 20160928, end: 20161005
  5. INHALERS [Concomitant]
     Active Substance: UNSPECIFIED INGREDIENT
     Indication: CHRONIC OBSTRUCTIVE PULMONARY DISEASE
     Dosage: UNK
     Route: 065
  6. ANTIHYPERTENSIVES [Concomitant]
     Active Substance: UNSPECIFIED INGREDIENT
     Indication: HYPERTENSION
     Dosage: UNK
     Route: 065

REACTIONS (10)
  - Somnolence [Not Recovered/Not Resolved]
  - Aphasia [Not Recovered/Not Resolved]
  - Incontinence [Not Recovered/Not Resolved]
  - Decreased appetite [Not Recovered/Not Resolved]
  - Staring [Not Recovered/Not Resolved]
  - Dementia Alzheimer^s type [Fatal]
  - Gait disturbance [Not Recovered/Not Resolved]
  - Myoclonus [Not Recovered/Not Resolved]
  - Feeling abnormal [Not Recovered/Not Resolved]
  - Dysphagia [Not Recovered/Not Resolved]
